FAERS Safety Report 19727399 (Version 1)
Quarter: 2021Q3

REPORT INFORMATION
  Report Type: Spontaneous
  Country: US (occurrence: US)
  Receive Date: 20210819
  Receipt Date: 20210819
  Transmission Date: 20211014
  Serious: No
  Sender: FDA-Public Use
  Company Number: None

PATIENT
  Age: 59 Year
  Sex: Female

DRUGS (1)
  1. REVLIMID [Suspect]
     Active Substance: LENALIDOMIDE
     Indication: PLASMA CELL MYELOMA
     Route: 048
     Dates: start: 20171030

REACTIONS (6)
  - Light chain analysis increased [None]
  - Blood albumin increased [None]
  - Laboratory test abnormal [None]
  - White blood cell count decreased [None]
  - Monocyte percentage increased [None]
  - Red cell distribution width increased [None]

NARRATIVE: CASE EVENT DATE: 20210810
